FAERS Safety Report 5010592-X (Version None)
Quarter: 2006Q2

REPORT INFORMATION
  Report Type: 
  Country: None (occurrence: None)
  Receive Date: 20060524
  Receipt Date: 20060524
  Transmission Date: 20061013
  Serious: Yes (Hospitalization)
  Sender: FDA-Public Use
  Company Number: None

PATIENT
  Age: 48 Year
  Sex: Male
  Weight: 50.4 kg

DRUGS (17)
  1. TAXOTERE [Suspect]
     Indication: NEOPLASM MALIGNANT
     Dosage: 120 MG DAY 1 Q 21 DAYS IV DRIP
     Route: 041
     Dates: start: 20060424, end: 20060515
  2. CISPLATIN [Suspect]
  3. FLUOROURACIL [Suspect]
     Indication: NEOPLASM MALIGNANT
     Dosage: 1200 MG DAYS 1-5 Q 21 DAYS IV DRIP
     Route: 041
     Dates: start: 20060424, end: 20060519
  4. ATENOLOL [Concomitant]
  5. NORVASC [Concomitant]
  6. ALTACE [Concomitant]
  7. LORTAB [Concomitant]
  8. DURAGESIC-100 [Concomitant]
  9. COUMADIN [Concomitant]
  10. ASPIRIN [Concomitant]
  11. COMPAZINE [Concomitant]
  12. ZOFRAN [Concomitant]
  13. NEXIUM [Concomitant]
  14. ZOLOFT [Concomitant]
  15. ATIVAN [Concomitant]
  16. EMEND [Concomitant]
  17. MAG-OX [Concomitant]

REACTIONS (3)
  - DIZZINESS [None]
  - NEUROPATHY [None]
  - TUMOUR INVASION [None]
